FAERS Safety Report 20423853 (Version 1)
Quarter: 2022Q1

REPORT INFORMATION
  Report Type: Spontaneous
  Country: IT (occurrence: IT)
  Receive Date: 20220203
  Receipt Date: 20220203
  Transmission Date: 20220424
  Serious: Yes (Death, Other)
  Sender: FDA-Public Use
  Company Number: IT-EXELIXIS-CABO-21045865

PATIENT
  Age: 26 Year
  Sex: Female

DRUGS (8)
  1. CABOMETYX [Suspect]
     Active Substance: CABOZANTINIB S-MALATE
     Indication: Renal cell carcinoma
     Dosage: 60 MG, QD
     Route: 048
     Dates: start: 201805
  2. CABOMETYX [Suspect]
     Active Substance: CABOZANTINIB S-MALATE
     Indication: Clear cell renal cell carcinoma
     Dosage: 40 MG, QD
     Route: 048
     Dates: end: 201812
  3. SUNITINIB [Suspect]
     Active Substance: SUNITINIB
     Indication: Clear cell renal cell carcinoma
     Dosage: 50 MG, QD
     Route: 065
     Dates: start: 201902
  4. SORAFENIB [Concomitant]
     Active Substance: SORAFENIB
     Indication: Clear cell renal cell carcinoma
     Route: 065
     Dates: start: 201910
  5. ZOLEDRONIC ACID [Concomitant]
     Active Substance: ZOLEDRONIC ACID
     Indication: Metastases to bone
     Dosage: ON DAY 1 Q28
     Route: 065
  6. NIVOLUMAB [Concomitant]
     Active Substance: NIVOLUMAB
     Indication: Clear cell renal cell carcinoma
     Dosage: ON DAY 1 Q14
     Route: 065
     Dates: start: 201901
  7. BEVACIZUMAB [Concomitant]
     Active Substance: BEVACIZUMAB
     Indication: Clear cell renal cell carcinoma
     Dosage: ON DAY 1 Q21
     Route: 065
     Dates: start: 201607
  8. ATEZOLIZUMAB [Concomitant]
     Active Substance: ATEZOLIZUMAB
     Indication: Clear cell renal cell carcinoma
     Dosage: ON DAY 1 Q21
     Route: 065
     Dates: start: 201607

REACTIONS (5)
  - Malignant neoplasm progression [Fatal]
  - Drug ineffective [Unknown]
  - Fatigue [Unknown]
  - Hypertension [Unknown]
  - Hypothyroidism [Unknown]

NARRATIVE: CASE EVENT DATE: 20180501
